FAERS Safety Report 8816471 (Version 1)
Quarter: 2012Q4

REPORT INFORMATION
  Report Type: Spontaneous
  Country: US (occurrence: None)
  Receive Date: 20120927
  Receipt Date: 20120927
  Transmission Date: 20130627
  Serious: Yes (Death, Hospitalization)
  Sender: FDA-Public Use
  Company Number: B0832852A

PATIENT
  Age: 29 Year
  Sex: Male

DRUGS (3)
  1. SUMATRIPTAN SUCCINATE [Suspect]
     Indication: MIGRAINE
     Route: 048
     Dates: start: 200906, end: 201002
  2. ADDERALL [Suspect]
     Route: 048
  3. PROPRANOLOL HYDROCHLORIDE [Concomitant]

REACTIONS (7)
  - Coronary artery occlusion [None]
  - Myalgia [None]
  - Cardiac arrest [None]
  - Pulseless electrical activity [None]
  - Sinus tachycardia [None]
  - Syncope [None]
  - Pneumothorax [None]
